FAERS Safety Report 20663209 (Version 1)
Quarter: 2022Q2

REPORT INFORMATION
  Report Type: Spontaneous
  Country: US (occurrence: None)
  Receive Date: 20220401
  Receipt Date: 20220401
  Transmission Date: 20220720
  Serious: Yes (Other)
  Sender: FDA-Public Use
  Company Number: 2022A127892

PATIENT
  Age: 65 Year
  Sex: Male
  Weight: 63.5 kg

DRUGS (1)
  1. EVUSHELD [Suspect]
     Active Substance: CILGAVIMAB\TIXAGEVIMAB
     Indication: Immunodeficiency
     Dosage: 300 MG OF TIXAGEVIMAB AND 300 MG OF CILGAVIMAB
     Route: 030
     Dates: start: 20220312

REACTIONS (5)
  - Pulmonary oedema [Unknown]
  - Atrial flutter [Unknown]
  - Asthenia [Unknown]
  - Cough [Unknown]
  - Wheezing [Unknown]

NARRATIVE: CASE EVENT DATE: 20220313
